FAERS Safety Report 26129904 (Version 1)
Quarter: 2025Q4

REPORT INFORMATION
  Report Type: Spontaneous
  Country: US (occurrence: US)
  Receive Date: 20251208
  Receipt Date: 20251208
  Transmission Date: 20260118
  Serious: No
  Sender: BOEHRINGER INGELHEIM
  Company Number: US-BoehringerIngelheim-2025-BI-112458

PATIENT
  Age: 84 Year
  Sex: Female
  Weight: 77.6 kg

DRUGS (19)
  1. OFEV [Suspect]
     Active Substance: NINTEDANIB
     Indication: Pulmonary arterial hypertension
     Dosage: UNKNOWN
  2. YUTREPIA [Suspect]
     Active Substance: TREPROSTINIL SODIUM
     Indication: Pulmonary arterial hypertension
  3. YUTREPIA [Suspect]
     Active Substance: TREPROSTINIL SODIUM
  4. YUTREPIA [Suspect]
     Active Substance: TREPROSTINIL SODIUM
     Dates: start: 20251101, end: 20251104
  5. YUTREPIA [Suspect]
     Active Substance: TREPROSTINIL SODIUM
     Dosage: (79.5+79.5) (INHALE 2? BREATHS PER CAPSULE),? RESPIRATORY
     Dates: start: 20250901
  6. TRULICITY [Concomitant]
     Active Substance: DULAGLUTIDE
     Indication: Product used for unknown indication
  7. TRULICITY [Concomitant]
     Active Substance: DULAGLUTIDE
     Indication: Product used for unknown indication
  8. FUROSEMIDE [Concomitant]
     Active Substance: FUROSEMIDE
     Indication: Product used for unknown indication
  9. TADALAFIL [Concomitant]
     Active Substance: TADALAFIL
     Indication: Product used for unknown indication
  10. LOSARTAN POTASSIUM [Concomitant]
     Active Substance: LOSARTAN POTASSIUM
     Indication: Product used for unknown indication
  11. ALLOPURINOL [Concomitant]
     Active Substance: ALLOPURINOL
     Indication: Product used for unknown indication
  12. ASPIRIN [Concomitant]
     Active Substance: ASPIRIN
     Indication: Product used for unknown indication
  13. ROSUVASTATIN CALCIUM [Concomitant]
     Active Substance: ROSUVASTATIN CALCIUM
     Indication: Product used for unknown indication
  14. CALCITRIOL [Concomitant]
     Active Substance: CALCITRIOL
     Indication: Product used for unknown indication
  15. OPSUMIT [Concomitant]
     Active Substance: MACITENTAN
     Indication: Product used for unknown indication
  16. OXYGEN [Concomitant]
     Active Substance: OXYGEN
     Indication: Product used for unknown indication
  17. OMEPRAZOLE [Concomitant]
     Active Substance: OMEPRAZOLE
     Indication: Product used for unknown indication
  18. SOTATERCEPT [Concomitant]
     Active Substance: SOTATERCEPT
     Indication: Product used for unknown indication
  19. WINREVAIR [Concomitant]
     Active Substance: SOTATERCEPT-CSRK
     Indication: Product used for unknown indication

REACTIONS (8)
  - Diarrhoea [Unknown]
  - Abdominal discomfort [Unknown]
  - Epistaxis [Unknown]
  - Drug intolerance [Unknown]
  - Dry mouth [Unknown]
  - Dyspepsia [Unknown]
  - Cough [Unknown]
  - Throat irritation [Recovering/Resolving]

NARRATIVE: CASE EVENT DATE: 20250101
